FAERS Safety Report 8447899-X (Version None)
Quarter: 2012Q2

REPORT INFORMATION
  Report Type: 
  Country: None (occurrence: None)
  Receive Date: 20120612
  Receipt Date: 20120526
  Transmission Date: 20120825
  Serious: Yes (Hospitalization)
  Sender: FDA-Public Use
  Company Number: 2012AP001618

PATIENT
  Age: 56 Year
  Sex: Male

DRUGS (2)
  1. LAMOTRIGINE [Suspect]
     Indication: CONVULSION
     Dosage: 200 MG, TID, PO
     Route: 048
  2. CLONAZEPAM [Suspect]
     Indication: CONVULSION
     Dosage: 1 MG, BID, PO
     Route: 048

REACTIONS (25)
  - MUSCLE RIGIDITY [None]
  - AGITATION [None]
  - NASAL SEPTUM DEVIATION [None]
  - ALANINE AMINOTRANSFERASE INCREASED [None]
  - SPEECH DISORDER [None]
  - FACIAL BONES FRACTURE [None]
  - NASAL SEPTUM DISORDER [None]
  - ASPARTATE AMINOTRANSFERASE INCREASED [None]
  - TOXICITY TO VARIOUS AGENTS [None]
  - CONFUSIONAL STATE [None]
  - INCOHERENT [None]
  - GRAND MAL CONVULSION [None]
  - POSTICTAL STATE [None]
  - RHABDOMYOLYSIS [None]
  - EXPRESSIVE LANGUAGE DISORDER [None]
  - ELECTROCARDIOGRAM QT PROLONGED [None]
  - MENTAL STATUS CHANGES [None]
  - LACERATION [None]
  - BLOOD GLUCOSE INCREASED [None]
  - DRUG LEVEL BELOW THERAPEUTIC [None]
  - OVERDOSE [None]
  - DRUG WITHDRAWAL SYNDROME [None]
  - TREATMENT NONCOMPLIANCE [None]
  - TONGUE INJURY [None]
  - MUSCLE SPASTICITY [None]
